FAERS Safety Report 20378797 (Version 1)
Quarter: 2022Q1

REPORT INFORMATION
  Report Type: Spontaneous
  Country: US (occurrence: None)
  Receive Date: 20220126
  Receipt Date: 20220126
  Transmission Date: 20220423
  Serious: Yes (Hospitalization)
  Sender: FDA-Public Use
  Company Number: None

PATIENT
  Age: 61 Year
  Sex: Male
  Weight: 121 kg

DRUGS (1)
  1. LENALIDOMIDE [Suspect]
     Active Substance: LENALIDOMIDE

REACTIONS (6)
  - Fatigue [None]
  - Leukopenia [None]
  - Therapy interrupted [None]
  - Thrombocytopenia [None]
  - Myelodysplastic syndrome [None]
  - Vomiting [None]

NARRATIVE: CASE EVENT DATE: 20210805
